FAERS Safety Report 5016713-7 (Version None)
Quarter: 2006Q3

REPORT INFORMATION
  Report Type: 
  Country: None (occurrence: None)
  Receive Date: 20060602
  Receipt Date: 20050126
  Transmission Date: 20061208
  Serious: No
  Sender: FDA-Public Use
  Company Number: US-GLAXOSMITHKLINE-A0542462A

PATIENT
  Age: 15 Month
  Sex: Male
  Weight: 10.9 kg

DRUGS (2)
  1. AMOXICILLIN + CLAVULANATE POTASSIUM [Suspect]
     Indication: LOWER RESPIRATORY TRACT INFECTION
     Dosage: 1TSP TWICE PER DAY
     Route: 048
     Dates: start: 20050121, end: 20050125
  2. NO CONCURRENT MEDICATION [Concomitant]

REACTIONS (2)
  - GINGIVAL BLEEDING [None]
  - GINGIVAL SWELLING [None]
